FAERS Safety Report 7451492-5 (Version None)
Quarter: 2011Q2

REPORT INFORMATION
  Report Type: 
  Country: None (occurrence: None)
  Receive Date: 20110502
  Receipt Date: 20110421
  Transmission Date: 20111010
  Serious: Yes (Hospitalization, Other)
  Sender: FDA-Public Use
  Company Number: US-GENZYME-THYM-1002376

PATIENT
  Age: 68 Year
  Sex: Male
  Weight: 106 kg

DRUGS (28)
  1. THYMOGLOBULIN [Suspect]
     Indication: MULTIPLE MYELOMA
     Dosage: 0.5 MG/KG, QD
     Route: 042
     Dates: start: 20081020, end: 20081020
  2. BENADRYL [Concomitant]
     Indication: PREMEDICATION
     Dosage: UNK
     Dates: start: 20081021
  3. FLUXET [Concomitant]
     Indication: PRODUCT USED FOR UNKNOWN INDICATION
     Dosage: 20 MG, QD
  4. VALTREX [Concomitant]
     Indication: PROPHYLAXIS
  5. BACTRIUM DS [Concomitant]
     Indication: PROPHYLAXIS
  6. THYMOGLOBULIN [Suspect]
     Dosage: 2 MG/KG, QD
     Route: 042
     Dates: start: 20081022, end: 20081023
  7. GLUCOVANCE [Concomitant]
     Indication: PRODUCT USED FOR UNKNOWN INDICATION
     Dosage: UNK
  8. ACETAMINOPHEN [Concomitant]
     Indication: PREMEDICATION
     Dosage: UNK
     Dates: start: 20081021
  9. RAPAMYCIN [Concomitant]
     Indication: MULTIPLE MYELOMA
     Route: 048
  10. HUMALOG [Concomitant]
     Indication: PRODUCT USED FOR UNKNOWN INDICATION
  11. HYDROCORTISONE [Concomitant]
     Indication: PYREXIA
  12. DEMEROL [Concomitant]
     Indication: PREMEDICATION
  13. ZOSYN [Concomitant]
     Indication: INFECTION PROPHYLAXIS
  14. DIFLUCAN [Concomitant]
     Indication: PROPHYLAXIS
  15. ARANESP [Concomitant]
     Indication: PRODUCT USED FOR UNKNOWN INDICATION
     Dosage: 200 MCG, Q2W
  16. HYDROCHLOROTHIAZDE TAB [Concomitant]
     Indication: PRODUCT USED FOR UNKNOWN INDICATION
     Dosage: 25 MG, QD
  17. VITAMIN D [Concomitant]
     Indication: PRODUCT USED FOR UNKNOWN INDICATION
     Dosage: UNK
  18. PROTONIX [Concomitant]
     Indication: PRODUCT USED FOR UNKNOWN INDICATION
     Dosage: 40 MG, QD
  19. METHYLPREDNISOLONE [Concomitant]
     Indication: PREMEDICATION
     Dosage: UNK
     Dates: start: 20081021
  20. THYMOGLOBULIN [Suspect]
     Dosage: 2 MG/KG, QD
     Route: 042
     Dates: start: 20081025, end: 20081027
  21. ALTACE [Concomitant]
     Indication: PRODUCT USED FOR UNKNOWN INDICATION
     Dosage: 10 MG, QD
  22. CALCIUM [Concomitant]
     Indication: PRODUCT USED FOR UNKNOWN INDICATION
     Dosage: 600 MG, BID
  23. DIOVAN [Concomitant]
     Indication: PRODUCT USED FOR UNKNOWN INDICATION
     Dosage: 160 MG, QD
  24. SIMVASTATIN [Concomitant]
     Indication: PRODUCT USED FOR UNKNOWN INDICATION
     Dosage: 40 MG, QD
  25. NORMAL SALINE [Concomitant]
     Indication: PRODUCT USED FOR UNKNOWN INDICATION
     Dosage: 75 ML, Q1HR
     Route: 042
     Dates: start: 20081021
  26. PREDNISOLONE [Concomitant]
     Indication: PRODUCT USED FOR UNKNOWN INDICATION
     Dosage: 1 MG/KG, QD
     Dates: start: 20081021
  27. SYNTHROID [Concomitant]
     Indication: PRODUCT USED FOR UNKNOWN INDICATION
     Dosage: 200 MCG, QD
  28. HYDROCORTISONE [Concomitant]
     Indication: PREMEDICATION

REACTIONS (6)
  - PYREXIA [None]
  - PULMONARY OEDEMA [None]
  - TACHYCARDIA [None]
  - HYPERTENSION [None]
  - DIASTOLIC DYSFUNCTION [None]
  - DIARRHOEA [None]
